FAERS Safety Report 6902483-1 (Version None)
Quarter: 2010Q3

REPORT INFORMATION
  Report Type: 
  Country: None (occurrence: None)
  Receive Date: 20100802
  Receipt Date: 20100802
  Transmission Date: 20110219
  Serious: No
  Sender: FDA-Public Use
  Company Number: None

PATIENT
  Sex: Male
  Weight: 143.881 kg

DRUGS (2)
  1. LISINOPRIL [Suspect]
     Indication: COUGH
     Dosage: 20MG QD PO
     Route: 048
     Dates: start: 20080826, end: 20100210
  2. ENALAPRIL MALEATE [Suspect]
     Indication: ARTHRALGIA
     Dosage: 10MG QD PO
     Route: 048
     Dates: start: 20080417, end: 20080826

REACTIONS (2)
  - COUGH [None]
  - PAIN [None]
